FAERS Safety Report 18925622 (Version 1)
Quarter: 2021Q1

REPORT INFORMATION
  Report Type: Spontaneous
  Country: US (occurrence: US)
  Receive Date: 20210222
  Receipt Date: 20210222
  Transmission Date: 20210420
  Serious: Yes (Hospitalization, Other)
  Sender: FDA-Public Use
  Company Number: US-AMAG PHARMACEUTICALS, INC.-AMAG202100482

PATIENT
  Age: 34 Year
  Sex: Female

DRUGS (1)
  1. MAKENA [Suspect]
     Active Substance: HYDROXYPROGESTERONE CAPROATE
     Indication: PREMATURE DELIVERY
     Dosage: THE PATIENT REPORTS STARTING HER THERAPY ^AROUND 15 OR 16 WEEKS^ GA
     Route: 058

REACTIONS (3)
  - Cervix cerclage procedure [Recovered/Resolved]
  - Premature labour [Not Recovered/Not Resolved]
  - Product administered at inappropriate site [Unknown]
